FAERS Safety Report 25627090 (Version 1)
Quarter: 2025Q3

REPORT INFORMATION
  Report Type: Spontaneous
  Country: JP (occurrence: JP)
  Receive Date: 20250731
  Receipt Date: 20250731
  Transmission Date: 20251020
  Serious: Yes (Hospitalization)
  Sender: JOHNSON AND JOHNSON
  Company Number: JP-JNJFOC-20250736765

PATIENT

DRUGS (3)
  1. TOPIRAMATE [Suspect]
     Active Substance: TOPIRAMATE
     Indication: Epilepsy
     Dosage: 1 TABLET OF TOPINA TABLETS 100MG IN THE MORNING AND EVENING
     Route: 048
  2. MENDON [CLORAZEPATE DIPOTASSIUM] [Concomitant]
     Indication: Epilepsy
  3. DIAMOX SEQUELS [Concomitant]
     Active Substance: ACETAZOLAMIDE
     Indication: Autism spectrum disorder

REACTIONS (2)
  - Hospitalisation [Unknown]
  - Off label use [Unknown]
